FAERS Safety Report 8393750 (Version 3)
Quarter: 2012Q4

REPORT INFORMATION
  Report Type: Spontaneous
  Country: DE (occurrence: None)
  Receive Date: 20120124
  Receipt Date: 20120905
  Transmission Date: 20130627
  Serious: Yes (Other)
  Sender: FDA-Public Use
  Company Number: EU-2011-10240

PATIENT
  Sex: Female
  Weight: 74 kg

DRUGS (20)
  1. SAMSCA [Suspect]
     Indication: HYPONATRAEMIA
     Route: 048
     Dates: start: 20101129, end: 20110930
  2. SAMSCA [Suspect]
     Indication: SIADH
     Route: 048
     Dates: start: 20101129, end: 20110930
  3. SAMSCA [Suspect]
     Indication: HYPONATRAEMIA
     Route: 048
     Dates: start: 20111001, end: 20120118
  4. SAMSCA [Suspect]
     Indication: SIADH
     Route: 048
     Dates: start: 20111001, end: 20120118
  5. SAMSCA [Suspect]
     Indication: HYPONATRAEMIA
     Route: 048
     Dates: start: 20120119, end: 20120401
  6. SAMSCA [Suspect]
     Indication: SIADH
     Route: 048
     Dates: start: 20120119, end: 20120401
  7. SAMSCA [Suspect]
     Indication: HYPONATRAEMIA
     Route: 048
     Dates: start: 20120402
  8. SAMSCA [Suspect]
     Indication: SIADH
     Route: 048
     Dates: start: 20120402
  9. BISOPROLOL FUMARATE [Concomitant]
  10. SIMVASTATIN [Concomitant]
  11. RAMIPRIL (RAMIPIRIL) [Concomitant]
  12. FOSAMAX [Concomitant]
  13. CHOLECALCIFEROL (CHOLECALCIFEROL) [Concomitant]
  14. PHENPROCOUMON (PHENPROCOUMON) [Concomitant]
  15. MUTAFLOR (ESCHERICHIA COLI) [Concomitant]
  16. DIGITOXIN [Concomitant]
  17. ASS (ACETYLSALICYLIC ACID) [Concomitant]
  18. CALCIUM WITH ONVITAMIN D3 (CALCIUM, COLECALICIFEROL) [Concomitant]
  19. AMLODIPIN (AMLODIPIN) [Concomitant]
  20. TORASEMIDE (TORASEMIDE) [Concomitant]

REACTIONS (13)
  - Insomnia [None]
  - Tachyarrhythmia [None]
  - Dyspepsia [None]
  - Dizziness [None]
  - Decreased appetite [None]
  - International normalised ratio increased [None]
  - Prothrombin time prolonged [None]
  - Nocturia [None]
  - Red blood cell sedimentation rate increased [None]
  - C-reactive protein increased [None]
  - Back pain [None]
  - Pain in extremity [None]
  - Arthralgia [None]
